FAERS Safety Report 9017151 (Version 1)
Quarter: 2013Q1

REPORT INFORMATION
  Report Type: Spontaneous
  Country: US (occurrence: US)
  Receive Date: 20130117
  Receipt Date: 20130117
  Transmission Date: 20140127
  Serious: No
  Sender: FDA-Public Use
  Company Number: US-TEVA-380267USA

PATIENT
  Sex: Male

DRUGS (3)
  1. NUVIGIL [Suspect]
     Indication: SOMNOLENCE
     Route: 048
  2. VALIUM [Concomitant]
     Indication: PANIC ATTACK
  3. AMBIEN [Concomitant]
     Indication: INSOMNIA

REACTIONS (2)
  - Somnolence [Recovered/Resolved]
  - Insomnia [Unknown]
